FAERS Safety Report 9331201 (Version 3)
Quarter: 2014Q2

REPORT INFORMATION
  Report Type: Spontaneous
  Country: DE (occurrence: DE)
  Receive Date: 20130605
  Receipt Date: 20140408
  Transmission Date: 20141212
  Serious: Yes (Hospitalization)
  Sender: FDA-Public Use
  Company Number: DE-AMGEN-DEUSP2013039223

PATIENT
  Age: 74 Year
  Sex: Female

DRUGS (25)
  1. PEGFILGRASTIM [Suspect]
     Indication: B-CELL LYMPHOMA
     Dosage: 6 MG, FOR 82 DAYS
     Route: 058
     Dates: start: 20121122
  2. PEGFILGRASTIM [Suspect]
     Dosage: 6 MG, FOR 82 DAYS
     Route: 058
     Dates: start: 20130211
  3. RITUXIMAB [Suspect]
     Indication: B-CELL LYMPHOMA
     Dosage: 656 MG, EVERY 3 WEEKS
     Route: 042
     Dates: start: 20121113
  4. CYCLOPHOSPHAMIDE [Suspect]
     Indication: B-CELL LYMPHOMA
     Dosage: 1360 MG, 1 IN 2 WK
     Route: 042
     Dates: start: 20121119
  5. CYCLOPHOSPHAMIDE [Suspect]
     Dosage: 1360 MG, 1 IN 2 WK
     Route: 042
     Dates: start: 20130208
  6. DOXORUBICIN [Suspect]
     Indication: B-CELL LYMPHOMA
     Dosage: 90 MG, 1 IN 2 WK
     Route: 042
     Dates: start: 20121119
  7. DOXORUBICIN [Suspect]
     Dosage: 90 MG, 1 IN 2 WK
     Route: 042
     Dates: start: 20130208
  8. VINCRISTINE [Suspect]
     Indication: B-CELL LYMPHOMA
     Dosage: 2 MG, 1 IN 2 WK
     Route: 042
     Dates: start: 20121119
  9. VINCRISTINE [Suspect]
     Dosage: 2 MG, 1 IN 2 WK
     Route: 042
     Dates: start: 20130208
  10. PREDNISONE [Suspect]
     Indication: B-CELL LYMPHOMA
     Dosage: 100 MG, FOR 86 DAYS
     Route: 048
     Dates: start: 20121119
  11. PREDNISONE [Suspect]
     Dosage: 100 MG, FOR 86 DAYS
     Route: 048
     Dates: start: 20130212
  12. MESNA [Concomitant]
     Dosage: 200 MG, UNK
     Route: 042
     Dates: start: 20121120
  13. ONDANSETRON [Concomitant]
     Dosage: 8 MG, UNK
     Route: 048
     Dates: start: 20121120
  14. ALIZAPRIDE DCI [Concomitant]
     Dosage: 50 MG, UNK
     Route: 048
     Dates: start: 20121121
  15. PARACETAMOL [Concomitant]
     Dosage: 1000 MG, UNK
     Route: 048
     Dates: start: 20121119
  16. CLEMASTINE [Concomitant]
     Dosage: 2 MG, UNK
     Route: 042
     Dates: start: 20121119
  17. OXYCODONE [Concomitant]
     Indication: PAIN
     Dosage: 2 MG, 2 IN A D
     Route: 048
     Dates: start: 201211
  18. RAMIPRIL [Concomitant]
     Indication: HYPERTENSION
     Dosage: 2.5 MG, 1 IN 1 D
     Route: 048
  19. FUROSEMIDE [Concomitant]
     Indication: HYPERTENSION
     Dosage: 40 MG, UNK
     Route: 048
  20. LANSOPRAZOLE [Concomitant]
     Dosage: 30 MG, 1 IN 1 D
     Dates: start: 201211
  21. ALLOPURINOL [Concomitant]
     Dosage: 100 MG, 1 IN 1 D
     Route: 048
     Dates: start: 201211
  22. AMPHOTERICIN [Concomitant]
     Dosage: UNK
     Route: 048
     Dates: start: 20121119
  23. POLYETHYLENE GLYCOL [Concomitant]
     Dosage: UNK
     Route: 048
     Dates: start: 20121119
  24. TRIMETHOPRIM [Concomitant]
     Dosage: 960 MG, 3 IN 1 WK
     Route: 048
     Dates: start: 20121119
  25. ACICLOVIR [Concomitant]
     Dosage: 1600 MG, 4 IN 1 D
     Route: 048
     Dates: start: 20121119

REACTIONS (4)
  - Leukopenia [Recovered/Resolved]
  - Nausea [Recovered/Resolved]
  - Vomiting [Recovered/Resolved]
  - Pancytopenia [Recovered/Resolved]
